FAERS Safety Report 12491772 (Version 2)
Quarter: 2016Q3

REPORT INFORMATION
  Report Type: Report from Study
  Country: AR (occurrence: AR)
  Receive Date: 20160623
  Receipt Date: 20160712
  Transmission Date: 20161109
  Serious: Yes (Hospitalization)
  Sender: FDA-Public Use
  Company Number: PHHY2016AR085190

PATIENT
  Age: 67 Year
  Sex: Female

DRUGS (6)
  1. CARVEDILOL. [Concomitant]
     Active Substance: CARVEDILOL
     Indication: BLOOD PRESSURE ABNORMAL
     Dosage: 10 MG, (5 YEARS AGO APPROXIMATELY)
     Route: 065
  2. LEVOTHYROXINE. [Concomitant]
     Active Substance: LEVOTHYROXINE
     Indication: BLOOD PRESSURE ABNORMAL
     Dosage: (5 YEARS AGO APPROXIMATELY)
     Route: 065
  3. DIOVAN [Suspect]
     Active Substance: VALSARTAN
     Indication: HYPERTENSION
     Dosage: 200 MG (160 MG), QD (6 YEARS AGO OR SO)
     Route: 065
  4. DIOVAN [Suspect]
     Active Substance: VALSARTAN
     Dosage: 160 MG
     Route: 065
  5. DIOVAN [Suspect]
     Active Substance: VALSARTAN
     Dosage: 160 MG, BID (1 IN THE MORNING AND 1 AT NIGHT)
     Route: 065
  6. DIOVAN [Suspect]
     Active Substance: VALSARTAN
     Dosage: 320 MG, QD (ONLY TOOK IT ONCE)
     Route: 065

REACTIONS (9)
  - Back pain [Not Recovered/Not Resolved]
  - Fall [Not Recovered/Not Resolved]
  - Drug ineffective [Unknown]
  - Spinal fracture [Not Recovered/Not Resolved]
  - General physical health deterioration [Unknown]
  - Paraesthesia [Unknown]
  - Feeling abnormal [Unknown]
  - Blood pressure decreased [Recovered/Resolved]
  - Pain [Unknown]

NARRATIVE: CASE EVENT DATE: 201503
